FAERS Safety Report 5446465-8 (Version None)
Quarter: 2007Q3

REPORT INFORMATION
  Report Type: 
  Country: None (occurrence: None)
  Receive Date: 20070907
  Receipt Date: 20070903
  Transmission Date: 20080115
  Serious: Yes (Death)
  Sender: FDA-Public Use
  Company Number: JP-ASTRAZENECA-2007SE04734

PATIENT
  Age: 30441 Day
  Sex: Male
  Weight: 58 kg

DRUGS (10)
  1. CANDESARTAN CILEXETIL [Suspect]
     Indication: CARDIAC FAILURE CHRONIC
     Route: 048
     Dates: start: 20060829, end: 20061002
  2. CANDESARTAN CILEXETIL [Suspect]
     Route: 048
     Dates: start: 20061003, end: 20070219
  3. CANDESARTAN CILEXETIL [Suspect]
     Route: 048
     Dates: start: 20070220
  4. PRAVASTATIN [Concomitant]
     Indication: HYPERLIPIDAEMIA
     Route: 048
     Dates: end: 20070830
  5. ALLOPURINOL [Concomitant]
     Indication: HYPERURICAEMIA
     Route: 048
     Dates: end: 20070830
  6. LASIX [Concomitant]
     Indication: CARDIAC FAILURE CHRONIC
     Route: 048
     Dates: start: 20070710, end: 20070830
  7. HARNAL D [Concomitant]
     Indication: BENIGN PROSTATIC HYPERPLASIA
     Route: 048
     Dates: end: 20070830
  8. SPIROPENT [Concomitant]
     Indication: BRONCHITIS
     Route: 048
     Dates: start: 20070611, end: 20070830
  9. THEO-DUR [Concomitant]
     Indication: BRONCHITIS
     Route: 048
     Dates: start: 20070611, end: 20070830
  10. AROSERINE [Concomitant]
     Indication: BENIGN PROSTATIC HYPERPLASIA
     Route: 048
     Dates: start: 20070611, end: 20070830

REACTIONS (1)
  - SUDDEN DEATH [None]
